FAERS Safety Report 14236367 (Version 1)
Quarter: 2017Q4

REPORT INFORMATION
  Report Type: Spontaneous
  Country: US (occurrence: US)
  Receive Date: 20171129
  Receipt Date: 20171129
  Transmission Date: 20180321
  Serious: Yes (Hospitalization)
  Sender: FDA-Public Use
  Company Number: US-DSJP-DSU-2017-137694

PATIENT

DRUGS (2)
  1. BENICAR HCT [Suspect]
     Active Substance: HYDROCHLOROTHIAZIDE\OLMESARTAN MEDOXOMIL
     Indication: PRODUCT USED FOR UNKNOWN INDICATION
     Dosage: 20/12.5 MG, QD
     Dates: start: 201211, end: 20170823
  2. BENICAR [Suspect]
     Active Substance: OLMESARTAN MEDOXOMIL
     Indication: PRODUCT USED FOR UNKNOWN INDICATION
     Dosage: 20 MG, QD
     Dates: start: 201211, end: 20170823

REACTIONS (6)
  - Crohn^s disease [Recovering/Resolving]
  - Rectal haemorrhage [Unknown]
  - Umbilical hernia [Unknown]
  - Malabsorption [Recovering/Resolving]
  - Polyp [Unknown]
  - Oesophagitis [Unknown]

NARRATIVE: CASE EVENT DATE: 201209
